FAERS Safety Report 6672119-6 (Version None)
Quarter: 2010Q2

REPORT INFORMATION
  Report Type: 
  Country: None (occurrence: None)
  Receive Date: 20100407
  Receipt Date: 20100407
  Transmission Date: 20101027
  Serious: Yes (Other)
  Sender: FDA-Public Use
  Company Number: None

PATIENT
  Age: 12 Year
  Sex: Female
  Weight: 52.1637 kg

DRUGS (1)
  1. SINGULAIR [Suspect]
     Indication: ASTHMA
     Dosage: 10 MG ONCE A DAY PO
     Route: 048
     Dates: start: 20090918, end: 20100301

REACTIONS (3)
  - DEPRESSION [None]
  - HALLUCINATION [None]
  - SUICIDAL IDEATION [None]
